FAERS Safety Report 6215849-2 (Version None)
Quarter: 2009Q2

REPORT INFORMATION
  Report Type: 
  Country: None (occurrence: None)
  Receive Date: 20090605
  Receipt Date: 20090601
  Transmission Date: 20091009
  Serious: Yes (Other)
  Sender: FDA-Public Use
  Company Number: US-ASTRAZENECA-2009UW12865

PATIENT
  Age: 9739 Day
  Sex: Female
  Weight: 47.2 kg

DRUGS (1)
  1. ZOMIG-ZMT [Suspect]
     Route: 048
     Dates: start: 20090518

REACTIONS (12)
  - DISSOCIATION [None]
  - DIZZINESS [None]
  - DRUG INEFFECTIVE [None]
  - FALL [None]
  - HALLUCINATION [None]
  - HYPOAESTHESIA [None]
  - OESOPHAGEAL SPASM [None]
  - ORAL PAIN [None]
  - PSYCHOTIC DISORDER [None]
  - SWELLING [None]
  - SWOLLEN TONGUE [None]
  - TACHYCARDIA [None]
